FAERS Safety Report 9208926 (Version 1)
Quarter: 2013Q1

REPORT INFORMATION
  Report Type: Spontaneous
  Country: US (occurrence: None)
  Receive Date: 20120817
  Receipt Date: 20120817
  Transmission Date: 20140127
  Serious: Yes (Hospitalization, Other)
  Sender: FDA-Public Use
  Company Number: ADR-2012-00990

PATIENT
  Age: 31 Year
  Sex: Female

DRUGS (1)
  1. LIORESAL [Suspect]
     Route: 037

REACTIONS (4)
  - No therapeutic response [None]
  - Flushing [None]
  - Musculoskeletal stiffness [None]
  - Muscle spasticity [None]
